FAERS Safety Report 16012128 (Version 1)
Quarter: 2019Q1

REPORT INFORMATION
  Report Type: Report from Study
  Country: JP (occurrence: JP)
  Receive Date: 20190227
  Receipt Date: 20190227
  Transmission Date: 20190418
  Serious: Yes (Death, Hospitalization)
  Sender: FDA-Public Use
  Company Number: JP-ACTELION-A-CH2019-184719

PATIENT
  Age: 73 Year
  Sex: Male

DRUGS (4)
  1. ADCIRCA [Concomitant]
     Active Substance: TADALAFIL
  2. LUPRAC [Concomitant]
     Active Substance: TORSEMIDE
  3. OPSUMIT [Suspect]
     Active Substance: MACITENTAN
     Indication: PULMONARY ARTERIAL HYPERTENSION
     Dosage: 10 MG, QD
     Route: 048
     Dates: start: 20161214, end: 20180717
  4. OXYGEN. [Concomitant]
     Active Substance: OXYGEN

REACTIONS (2)
  - Cardio-respiratory arrest [Fatal]
  - Sudden death [Fatal]

NARRATIVE: CASE EVENT DATE: 20180813
